FAERS Safety Report 13257975 (Version 7)
Quarter: 2021Q4

REPORT INFORMATION
  Report Type: Spontaneous
  Country: US (occurrence: US)
  Receive Date: 20170221
  Receipt Date: 20211027
  Transmission Date: 20220303
  Serious: No
  Sender: FDA-Public Use
  Company Number: US-PFIZER INC-2017077159

PATIENT
  Age: 68 Year
  Sex: Female
  Weight: 73 kg

DRUGS (4)
  1. LYRICA [Suspect]
     Active Substance: PREGABALIN
     Indication: Trigeminal nerve disorder
     Dosage: 75 MG, TWICE DAILY
     Route: 048
  2. LYRICA [Suspect]
     Active Substance: PREGABALIN
     Indication: Trigeminal neuralgia
     Dosage: 100 MG, THREE TIMES A DAY
     Route: 048
     Dates: start: 20180718
  3. LYRICA [Suspect]
     Active Substance: PREGABALIN
     Indication: Facial nerve disorder
     Dosage: 200 MG, THREE TIMES A DAY
     Route: 048
     Dates: start: 20190408
  4. LYRICA [Suspect]
     Active Substance: PREGABALIN
     Dosage: 50 MG, THREE TIMES A DAY
     Route: 048

REACTIONS (7)
  - Therapeutic product effect incomplete [Unknown]
  - Incoherent [Unknown]
  - Loss of personal independence in daily activities [Unknown]
  - Lethargy [Unknown]
  - Dizziness [Unknown]
  - Feeling abnormal [Unknown]
  - Dysarthria [Unknown]
